FAERS Safety Report 5268700-1 (Version None)
Quarter: 2007Q1

REPORT INFORMATION
  Report Type: 
  Country: None (occurrence: None)
  Receive Date: 20061213
  Receipt Date: 20040330
  Transmission Date: 20070707
  Serious: Yes (Death)
  Sender: FDA-Public Use
  Company Number: 2004UW06277

PATIENT
  Age: 71 Year
  Sex: Male
  Weight: 81.6475 kg

DRUGS (5)
  1. IRESSA [Suspect]
     Indication: NON-SMALL CELL LUNG CANCER
     Dosage: 250 MG QD PO
     Route: 048
  2. METOPROLOL SUCCINATE [Concomitant]
  3. CELEBREX [Concomitant]
  4. DEXAMETHASONE 0.5MG TAB [Concomitant]
  5. PHENYTOIN [Concomitant]

REACTIONS (1)
  - DEATH [None]
